FAERS Safety Report 15920140 (Version 1)
Quarter: 2019Q1

REPORT INFORMATION
  Report Type: Spontaneous
  Country: US (occurrence: US)
  Receive Date: 20190205
  Receipt Date: 20190205
  Transmission Date: 20190417
  Serious: Yes (Other)
  Sender: FDA-Public Use
  Company Number: US-GILEAD-2019-0388471

PATIENT
  Age: 62 Year
  Sex: Male
  Weight: 67.2 kg

DRUGS (1)
  1. YESCARTA [Suspect]
     Active Substance: AXICABTAGENE CILOLEUCEL
     Indication: DIFFUSE LARGE B-CELL LYMPHOMA
     Dosage: UNK, INFUSION
     Route: 065
     Dates: start: 20181121, end: 20181121

REACTIONS (3)
  - Disseminated intravascular coagulation [Unknown]
  - Cytokine release syndrome [Unknown]
  - CAR T-cell-related encephalopathy syndrome [Unknown]

NARRATIVE: CASE EVENT DATE: 20181123
